FAERS Safety Report 7994932-5 (Version None)
Quarter: 2011Q4

REPORT INFORMATION
  Report Type: 
  Country: None (occurrence: None)
  Receive Date: 20111220
  Receipt Date: 20111208
  Transmission Date: 20120403
  Serious: Yes (Other)
  Sender: FDA-Public Use
  Company Number: CA-ROCHE-1023151

PATIENT
  Sex: Female

DRUGS (3)
  1. SYMBICORT [Concomitant]
  2. SYMBICORT [Concomitant]
     Dosage: PUFFS
  3. XOLAIR [Suspect]
     Indication: ASTHMA
     Route: 058
     Dates: start: 20111025, end: 20111116

REACTIONS (1)
  - ASTHMA [None]
